FAERS Safety Report 7384645-5 (Version None)
Quarter: 2011Q1

REPORT INFORMATION
  Report Type: 
  Country: None (occurrence: None)
  Receive Date: 20110330
  Receipt Date: 20110328
  Transmission Date: 20110831
  Serious: No
  Sender: FDA-Public Use
  Company Number: JP-PFIZER INC-2011052130

PATIENT
  Age: 84 Year
  Sex: Female

DRUGS (2)
  1. LYRICA [Suspect]
     Indication: TRIGEMINAL NEURALGIA
     Dosage: 150 MG/DAY
     Dates: start: 20110302
  2. TEGRETOL [Concomitant]
     Dosage: UNK

REACTIONS (1)
  - COORDINATION ABNORMAL [None]
